FAERS Safety Report 5298724-X (Version None)
Quarter: 2007Q2

REPORT INFORMATION
  Report Type: 
  Country: None (occurrence: None)
  Receive Date: 20070417
  Receipt Date: 20070412
  Transmission Date: 20071010
  Serious: Yes (Hospitalization)
  Sender: FDA-Public Use
  Company Number: DEWYE184326MAR07

PATIENT
  Sex: Female
  Weight: 55 kg

DRUGS (4)
  1. VENLAFAXINE HCL [Suspect]
     Indication: PANIC DISORDER
     Route: 048
     Dates: start: 20061206, end: 20061211
  2. VENLAFAXINE HCL [Suspect]
     Indication: AGORAPHOBIA
     Route: 048
     Dates: start: 20061212, end: 20070309
  3. METOPROLOL SUCCINATE [Concomitant]
     Dosage: 1.5 TABLETS 47.5 MG EACH PER DAY
     Route: 048
  4. ATACAND [Concomitant]
     Dosage: 4 MG PER DAY
     Route: 048

REACTIONS (2)
  - BLOOD CREATINE PHOSPHOKINASE INCREASED [None]
  - BLOOD CREATINE PHOSPHOKINASE MB INCREASED [None]
